FAERS Safety Report 16653648 (Version 2)
Quarter: 2020Q1

REPORT INFORMATION
  Report Type: Spontaneous
  Country: US (occurrence: US)
  Receive Date: 20190731
  Receipt Date: 20200220
  Transmission Date: 20200409
  Serious: No
  Sender: FDA-Public Use
  Company Number: US-JNJFOC-20190741105

PATIENT
  Sex: Male
  Weight: 97.61 kg

DRUGS (3)
  1. XARELTO [Suspect]
     Active Substance: RIVAROXABAN
     Indication: DEEP VEIN THROMBOSIS
     Route: 048
     Dates: start: 20190520
  2. XARELTO [Suspect]
     Active Substance: RIVAROXABAN
     Indication: PULMONARY EMBOLISM
     Route: 048
     Dates: start: 20190428, end: 20190520
  3. XARELTO [Suspect]
     Active Substance: RIVAROXABAN
     Route: 048
     Dates: end: 20191023

REACTIONS (4)
  - Alopecia [Recovering/Resolving]
  - Blood testosterone decreased [Recovering/Resolving]
  - Depression [Recovering/Resolving]
  - Loss of libido [Recovering/Resolving]

NARRATIVE: CASE EVENT DATE: 2019
